FAERS Safety Report 9830235 (Version 2)
Quarter: 2014Q3

REPORT INFORMATION
  Report Type: Report from Study
  Country: US (occurrence: US)
  Receive Date: 20140120
  Receipt Date: 20140703
  Transmission Date: 20150326
  Serious: Yes (Disabling)
  Sender: FDA-Public Use
  Company Number: US-ALEXION PHARMACEUTICALS INC.-A201304770

PATIENT

DRUGS (2)
  1. EPOGEN [Concomitant]
     Active Substance: ERYTHROPOIETIN
     Indication: PRODUCT USED FOR UNKNOWN INDICATION
     Dosage: 2X/WK
     Route: 065
  2. SOLIRIS [Suspect]
     Active Substance: ECULIZUMAB
     Indication: HAEMOLYTIC URAEMIC SYNDROME
     Dosage: UNK
     Route: 042

REACTIONS (8)
  - Peritoneal dialysis [Unknown]
  - Headache [Unknown]
  - Balance disorder [Unknown]
  - Gastrointestinal disorder [Unknown]
  - Catheter placement [Unknown]
  - Hypertension [Unknown]
  - Haemodialysis [Unknown]
  - Fatigue [Unknown]

NARRATIVE: CASE EVENT DATE: 20130913
